FAERS Safety Report 10192511 (Version 1)
Quarter: 2014Q2

REPORT INFORMATION
  Report Type: Report from Study
  Country: BR (occurrence: BR)
  Receive Date: 20140523
  Receipt Date: 20140523
  Transmission Date: 20141212
  Serious: Yes (Other)
  Sender: FDA-Public Use
  Company Number: PHHY2014BR063046

PATIENT
  Sex: Female
  Weight: 40 kg

DRUGS (3)
  1. ACLASTA [Suspect]
     Indication: OSTEOPOROSIS PROPHYLAXIS
     Dosage: ONCE PER YEAR
     Route: 042
  2. ZELMAC [Concomitant]
     Indication: DYSPEPSIA
     Dosage: 2 DF, DAILY
     Dates: start: 2009
  3. NEXIUM//ESOMEPRAZOLE SODIUM [Concomitant]
     Indication: DYSPEPSIA
     Dosage: 1 DF, DAILY
     Dates: start: 2012

REACTIONS (2)
  - Quadriplegia [Not Recovered/Not Resolved]
  - Urinary tract infection [Recovering/Resolving]
